FAERS Safety Report 13678599 (Version 1)
Quarter: 2017Q2

REPORT INFORMATION
  Report Type: Spontaneous
  Country: PT (occurrence: PT)
  Receive Date: 20170622
  Receipt Date: 20170622
  Transmission Date: 20170830
  Serious: Yes (Other)
  Sender: FDA-Public Use
  Company Number: PT-ASTRAZENECA-2017SE64075

PATIENT
  Sex: Female

DRUGS (5)
  1. ESOMEPRAZOLE [Suspect]
     Active Substance: ESOMEPRAZOLE
     Dosage: 20MG (ONCE A DAY, BEFORE BREAKFAST)
     Route: 048
  2. SEROQUEL [Suspect]
     Active Substance: QUETIAPINE FUMARATE
     Indication: SLEEP DISORDER
     Route: 048
  3. DORMICUM [Concomitant]
     Indication: SLEEP DISORDER
     Route: 048
  4. MIRTAZAPINE. [Concomitant]
     Active Substance: MIRTAZAPINE
     Dosage: 15MG (PREVIOUSLY SHE WAS TAKING 30 MG)
  5. SERTRALINE [Concomitant]
     Active Substance: SERTRALINE HYDROCHLORIDE
     Dosage: 50MG (ONCE A DAY IN THE MORNING)

REACTIONS (7)
  - Extrasystoles [Recovered/Resolved]
  - Eye swelling [Unknown]
  - Head discomfort [Unknown]
  - Dry mouth [Unknown]
  - Malaise [Unknown]
  - Off label use [Unknown]
  - Product use in unapproved indication [Unknown]
